FAERS Safety Report 19940043 (Version 3)
Quarter: 2022Q1

REPORT INFORMATION
  Report Type: Report from Study
  Country: BR (occurrence: BR)
  Receive Date: 20211012
  Receipt Date: 20220110
  Transmission Date: 20220424
  Serious: Yes (Disabling)
  Sender: FDA-Public Use
  Company Number: BR-ABBVIE-21K-020-4115361-00

PATIENT
  Age: 51 Year
  Sex: Female
  Weight: 85 kg

DRUGS (2)
  1. SKYRIZI [Suspect]
     Active Substance: RISANKIZUMAB-RZAA
     Indication: Psoriasis
     Dosage: 2 INJECTIONS OF 75MG ON WEEK 0
     Route: 058
     Dates: start: 20210423, end: 20210423
  2. SKYRIZI [Suspect]
     Active Substance: RISANKIZUMAB-RZAA
     Dosage: 2 INJECTIONS OF 75MG ON THE FOURTH DOSE
     Route: 058
     Dates: start: 20211105

REACTIONS (3)
  - Intervertebral disc protrusion [Recovering/Resolving]
  - Illness [Recovered/Resolved]
  - Joint lock [Unknown]

NARRATIVE: CASE EVENT DATE: 20211001
